FAERS Safety Report 18042845 (Version 1)
Quarter: 2020Q3

REPORT INFORMATION
  Report Type: Spontaneous
  Country: US (occurrence: US)
  Receive Date: 20200717
  Receipt Date: 20200717
  Transmission Date: 20201103
  Serious: Yes (Death)
  Sender: FDA-Public Use
  Company Number: None

PATIENT
  Age: 71 Year
  Sex: Male
  Weight: 72.9 kg

DRUGS (20)
  1. HYDROXCHLOROQUINE 400 MG PO Q12HRS [Concomitant]
     Dates: start: 20200614, end: 20200614
  2. ENOXAPARIN 100 MG SQ Q12HRS [Concomitant]
     Dates: start: 20200615, end: 20200618
  3. ENOXAPARIN 70 MG SQ Q12HRS [Concomitant]
     Dates: start: 20200622, end: 20200630
  4. MEROPENEM 500 MG Q8HR [Concomitant]
     Dates: start: 20200618, end: 20200620
  5. ASCORBIC ACID 1000 MG PO Q12H [Concomitant]
     Dates: start: 20200614, end: 20200630
  6. MEROPENEM 1 GM Q8HR [Concomitant]
     Dates: start: 20200615, end: 20200618
  7. VANCOMYCIN 1 GM IV Q12HRS [Concomitant]
     Dates: start: 20200616, end: 20200616
  8. VANCOMYCIN 750 MG IV Q12HRS [Concomitant]
     Dates: start: 20200617, end: 20200618
  9. LANTUS 10 UNITS SQ BID [Concomitant]
     Dates: start: 20200619, end: 20200620
  10. AMLODIPINE 10 MG [Concomitant]
     Active Substance: AMLODIPINE BESYLATE
     Dates: start: 20200628, end: 20200630
  11. DEXAMETHASONE 10 MG IV ONCE DAILY [Concomitant]
     Dates: start: 20200617, end: 20200628
  12. HYDROXYCHLOROQUINE 400 MG PO DAILY [Concomitant]
     Dates: start: 20200615, end: 20200616
  13. ENOXAPARIN 100 MG SQ ONCE DAILY [Concomitant]
     Dates: start: 20200619, end: 20200620
  14. ZINC SULFATE 220 MG PO BID [Concomitant]
     Dates: start: 20200614, end: 20200630
  15. LANTUS 16?24 UNITS SQ BID [Concomitant]
     Dates: start: 20200620, end: 20200621
  16. CONVALESCENT PLASMA [Concomitant]
     Active Substance: HUMAN PLASMA
     Dates: start: 20200615, end: 20200615
  17. REMDESIVIR. [Suspect]
     Active Substance: REMDESIVIR
     Indication: COVID-19 PNEUMONIA
     Route: 042
     Dates: start: 20200614, end: 20200625
  18. ENOXAPARIN 50 MG SQ Q12HRS [Concomitant]
     Dates: start: 20200614, end: 20200615
  19. ENOXAPARIN 80 MG SQ ONCE DAILY [Concomitant]
     Dates: start: 20200621, end: 20200622
  20. METHYLPREDNISOLONE 40 MG IV Q12HR [Concomitant]
     Dates: start: 20200628, end: 20200630

REACTIONS (2)
  - Respiratory failure [None]
  - Acute respiratory failure [None]

NARRATIVE: CASE EVENT DATE: 20200701
